FAERS Safety Report 9843003 (Version 3)
Quarter: 2014Q2

REPORT INFORMATION
  Report Type: Spontaneous
  Country: US (occurrence: US)
  Receive Date: 20140124
  Receipt Date: 20140403
  Transmission Date: 20141212
  Serious: Yes (Other)
  Sender: FDA-Public Use
  Company Number: US-B.I. PHARMACEUTICALS,INC./RIDGEFIELD-2014-BI-03051BP

PATIENT
  Sex: Female
  Weight: 64.41 kg

DRUGS (10)
  1. COMBIVENT [Suspect]
     Indication: CHRONIC OBSTRUCTIVE PULMONARY DISEASE
     Dosage: DOSE PER APPLICATION: 20 MCG / 100 MCG; DAILY DOSE: 80 MCG / 400 MCG
     Route: 055
     Dates: start: 2013
  2. COMBIVENT [Suspect]
     Indication: CHRONIC OBSTRUCTIVE PULMONARY DISEASE
     Dosage: DOSE PER APPLICATION: 18 MCG / 103 MCG; DAILY DOSE: 144 MCG / 824 MCG
     Route: 055
     Dates: start: 2004, end: 2013
  3. LORAZEPAM [Concomitant]
     Indication: ANXIETY
     Route: 048
  4. ADVAIR [Concomitant]
     Indication: CHRONIC OBSTRUCTIVE PULMONARY DISEASE
     Route: 055
  5. DUONEB [Concomitant]
     Dosage: STRENGTH: 0.5/3MG, DOSE: 3ML EVERY 6 PRN
     Route: 065
  6. ALODIPINE [Concomitant]
     Dosage: 10 MG
     Route: 065
  7. FAMOTIDINE [Concomitant]
     Dosage: 40 MG
     Route: 065
  8. LEVAQUIN [Concomitant]
     Dosage: 500 MG
     Route: 065
  9. TAMZEPAM [Concomitant]
     Route: 065
  10. METOPROLOL TARTRATE [Concomitant]
     Dosage: 25 MG
     Route: 065

REACTIONS (7)
  - Lung neoplasm malignant [Not Recovered/Not Resolved]
  - Breast cancer [Not Recovered/Not Resolved]
  - Chronic obstructive pulmonary disease [Unknown]
  - Hypoxia [Unknown]
  - Drug ineffective [Not Recovered/Not Resolved]
  - Product quality issue [Recovered/Resolved]
  - Product quality issue [Recovered/Resolved]
